FAERS Safety Report 13571560 (Version 1)
Quarter: 2017Q2

REPORT INFORMATION
  Report Type: Spontaneous
  Country: US (occurrence: US)
  Receive Date: 20170523
  Receipt Date: 20170523
  Transmission Date: 20170830
  Serious: No
  Sender: FDA-Public Use
  Company Number: US-PFIZER INC-2017219973

PATIENT
  Age: 64 Year
  Sex: Female

DRUGS (1)
  1. XELJANZ XR [Suspect]
     Active Substance: TOFACITINIB CITRATE
     Dosage: 11 MG, UNK
     Dates: start: 20170209, end: 20170404

REACTIONS (5)
  - Malaise [Unknown]
  - Herpes zoster [Unknown]
  - Asthenia [Unknown]
  - Immune system disorder [Unknown]
  - Slow speech [Unknown]
